FAERS Safety Report 9026829 (Version 2)
Quarter: 2013Q1

REPORT INFORMATION
  Report Type: Spontaneous
  Country: US (occurrence: US)
  Receive Date: 20130123
  Receipt Date: 20130215
  Transmission Date: 20140127
  Serious: Yes (Hospitalization, Other)
  Sender: FDA-Public Use
  Company Number: US-PFIZER INC-2013026716

PATIENT
  Age: 92 Year
  Sex: Female
  Weight: 74.83 kg

DRUGS (3)
  1. NEURONTIN [Suspect]
     Indication: NEUROPATHY PERIPHERAL
     Dosage: 100 MG, 3X/DAY
     Route: 048
  2. CELEBREX [Suspect]
     Indication: ARTHRITIS
     Dosage: 200 MG, UNK
  3. LYRICA [Suspect]
     Indication: NEUROPATHY PERIPHERAL
     Dosage: UNK

REACTIONS (8)
  - Fall [Unknown]
  - Weight decreased [Unknown]
  - Rib fracture [Unknown]
  - Hypotension [Unknown]
  - Impaired driving ability [Unknown]
  - Decreased appetite [Unknown]
  - Balance disorder [Unknown]
  - Alopecia [Unknown]
